FAERS Safety Report 8033968-5 (Version None)
Quarter: 2012Q1

REPORT INFORMATION
  Report Type: 
  Country: None (occurrence: None)
  Receive Date: 20120110
  Receipt Date: 20120105
  Transmission Date: 20120608
  Serious: Yes (Life-Threatening)
  Sender: FDA-Public Use
  Company Number: GB-MERCK-1201GBR00015

PATIENT
  Age: 87 Year
  Sex: Male

DRUGS (7)
  1. LANSOPRAZOLE [Concomitant]
     Route: 065
  2. ASPIRIN [Concomitant]
     Route: 065
  3. CALCIUM CARBONATE AND CHOLECALCIFEROL [Concomitant]
     Route: 065
  4. FOSAMAX [Suspect]
     Indication: PROPHYLAXIS
     Route: 048
     Dates: start: 20100901, end: 20111229
  5. PREDNISOLONE [Concomitant]
     Route: 065
  6. FLUOXETINE [Concomitant]
     Route: 065
  7. FOLIC ACID [Concomitant]
     Route: 065

REACTIONS (2)
  - HAEMORRHAGE [None]
  - OSTEONECROSIS OF JAW [None]
